FAERS Safety Report 12199462 (Version 1)
Quarter: 2016Q1

REPORT INFORMATION
  Report Type: Spontaneous
  Country: US (occurrence: None)
  Receive Date: 20160321
  Receipt Date: 20160321
  Transmission Date: 20160526
  Serious: Yes (Other)
  Sender: FDA-Public Use
  Company Number: None

PATIENT
  Age: 61 Year
  Sex: Female

DRUGS (3)
  1. HYDROMORPHONE 0.5MG [Suspect]
     Active Substance: HYDROMORPHONE
     Indication: PAIN
  2. FENTANYL 50 MCG [Suspect]
     Active Substance: FENTANYL
     Indication: PAIN
  3. MORPHINE 2 MG [Suspect]
     Active Substance: MORPHINE
     Indication: PAIN

REACTIONS (1)
  - Respiratory arrest [None]

NARRATIVE: CASE EVENT DATE: 20150818
